FAERS Safety Report 26087279 (Version 1)
Quarter: 2025Q4

REPORT INFORMATION
  Report Type: Spontaneous
  Country: US (occurrence: None)
  Receive Date: 20251124
  Receipt Date: 20251124
  Transmission Date: 20260118
  Serious: Yes (unspecified)
  Sender: FDA-CTU
  Company Number: None

PATIENT
  Age: 50 Year
  Sex: Female

DRUGS (1)
  1. LENALIDOMIDE [Suspect]
     Active Substance: LENALIDOMIDE
     Indication: Monoclonal gammopathy
     Dosage: FREQUENCY : DAILY;?
     Route: 048
     Dates: start: 20250611

REACTIONS (2)
  - Rash [None]
  - Therapy interrupted [None]

NARRATIVE: CASE EVENT DATE: 20251120
